FAERS Safety Report 8797576 (Version 1)
Quarter: 2012Q4

REPORT INFORMATION
  Report Type: 
  Country: AU (occurrence: AU)
  Receive Date: 20120920
  Receipt Date: 20120920
  Transmission Date: 20130627
  Serious: Yes (Other)
  Sender: FDA-Public Use
  Company Number: PHHY2012AU081132

PATIENT

DRUGS (1)
  1. TOBI [Suspect]

REACTIONS (2)
  - Cardiac failure [Unknown]
  - Chest discomfort [Unknown]
